FAERS Safety Report 4374493-2 (Version None)
Quarter: 2004Q2

REPORT INFORMATION
  Report Type: 
  Country: None (occurrence: None)
  Receive Date: 20040602
  Receipt Date: 20040227
  Transmission Date: 20050107
  Serious: No
  Sender: FDA-Public Use
  Company Number: 200414119BWH

PATIENT
  Age: 68 Year
  Sex: Male
  Weight: 81.6475 kg

DRUGS (5)
  1. LEVITRA [Suspect]
     Indication: ERECTILE DYSFUNCTION
     Dosage: 10 MG PRN ORAL
     Route: 048
     Dates: start: 20040101, end: 20040201
  2. INDERAL [Concomitant]
  3. DIOVAN [Concomitant]
  4. LISINOPRIL [Concomitant]
  5. SYNTHROID [Concomitant]

REACTIONS (3)
  - ERECTILE DYSFUNCTION [None]
  - FLUSHING [None]
  - HEART RATE INCREASED [None]
